FAERS Safety Report 8808787 (Version 4)
Quarter: 2013Q3

REPORT INFORMATION
  Report Type: Spontaneous
  Country: FR (occurrence: FR)
  Receive Date: 20120926
  Receipt Date: 20130906
  Transmission Date: 20140515
  Serious: Yes (Hospitalization)
  Sender: FDA-Public Use
  Company Number: FR-PFIZER INC-2012234729

PATIENT
  Age: 84 Year
  Sex: Female

DRUGS (7)
  1. XANAX [Suspect]
     Dosage: 0.25 MG, 3X/DAY
     Route: 048
  2. TAHOR [Suspect]
     Indication: HYPERCHOLESTEROLAEMIA
     Dosage: 40 MG, 1X/DAY
     Route: 048
     Dates: end: 20120830
  3. NORSET [Suspect]
     Dosage: 15 MG, 1X/DAY
     Route: 048
     Dates: start: 20120821, end: 20120830
  4. MONO-TILDIEM [Suspect]
     Indication: HYPERTENSION
     Dosage: 1 DF, 1X/DAY
     Route: 048
     Dates: end: 20120830
  5. LASILIX [Suspect]
     Indication: HYPERTENSION
     Dosage: 20 MG, 1X/DAY
     Route: 048
     Dates: end: 20120827
  6. COTAREG [Suspect]
     Indication: HYPERTENSION
     Dosage: 160 MG, 1X/DAY
     Route: 048
     Dates: end: 20120830
  7. HYPERIUM [Suspect]
     Indication: HYPERTENSION
     Dosage: 1 DF, 1X/DAY
     Route: 048
     Dates: end: 20120830

REACTIONS (3)
  - Hepatocellular injury [Recovered/Resolved]
  - Cholestasis [Recovered/Resolved]
  - Renal failure acute [Recovered/Resolved]
